FAERS Safety Report 6733907-0 (Version None)
Quarter: 2010Q2

REPORT INFORMATION
  Report Type: 
  Country: None (occurrence: None)
  Receive Date: 20100518
  Receipt Date: 20100507
  Transmission Date: 20101027
  Serious: Yes (Other)
  Sender: FDA-Public Use
  Company Number: 2009S1005209

PATIENT
  Age: 57 Year
  Sex: Male

DRUGS (2)
  1. PHOSPHOSODA FLAVOR NOT SPECIIFIED [Suspect]
     Indication: COLONOSCOPY
     Dosage: 90 ML;TOTAL;PO
     Route: 048
     Dates: start: 20061120, end: 20061120
  2. BENICAR [Concomitant]

REACTIONS (3)
  - ACUTE PHOSPHATE NEPHROPATHY [None]
  - RENAL FAILURE ACUTE [None]
  - RENAL FAILURE CHRONIC [None]
